FAERS Safety Report 17520851 (Version 1)
Quarter: 2020Q1

REPORT INFORMATION
  Report Type: Spontaneous
  Country: CH (occurrence: CH)
  Receive Date: 20200310
  Receipt Date: 20200310
  Transmission Date: 20200409
  Serious: Yes (Other)
  Sender: FDA-Public Use
  Company Number: NVSC2020CH064433

PATIENT
  Age: 52 Year
  Sex: Female

DRUGS (1)
  1. COSENTYX [Suspect]
     Active Substance: SECUKINUMAB
     Indication: ANKYLOSING SPONDYLITIS
     Dosage: 150 MG (INJECTIONS WITH INITIAL PHASE, THEN MONTHLY)
     Route: 058
     Dates: start: 20190313, end: 202001

REACTIONS (1)
  - Metastases to bone [Recovered/Resolved]

NARRATIVE: CASE EVENT DATE: 20200110
